FAERS Safety Report 17820662 (Version 7)
Quarter: 2022Q2

REPORT INFORMATION
  Report Type: Report from Study
  Country: IL (occurrence: IL)
  Receive Date: 20200525
  Receipt Date: 20220419
  Transmission Date: 20220721
  Serious: Yes (Death, Hospitalization)
  Sender: FDA-Public Use
  Company Number: IL-ABBVIE-20K-082-3413237-00

PATIENT
  Age: 69 Year
  Sex: Female
  Weight: 64 kg

DRUGS (22)
  1. VENETOCLAX [Suspect]
     Active Substance: VENETOCLAX
     Indication: Acute myelomonocytic leukaemia
     Dosage: RAMP UP
     Route: 048
     Dates: start: 20200417, end: 20200418
  2. VENETOCLAX [Suspect]
     Active Substance: VENETOCLAX
     Dosage: RAMP UP
     Route: 048
     Dates: start: 20200419, end: 20200419
  3. VENETOCLAX [Suspect]
     Active Substance: VENETOCLAX
     Dosage: MODIFICATION TO THE DAILY DOSE DUE TO ADVERSE EVENT
     Route: 048
     Dates: start: 20200420, end: 20200421
  4. VENETOCLAX [Suspect]
     Active Substance: VENETOCLAX
     Dosage: RAMP UP, DOSE INCREASE. RESOLUTION OF ADVERSE EVENT.
     Route: 048
     Dates: start: 20200422, end: 20200426
  5. VENETOCLAX [Suspect]
     Active Substance: VENETOCLAX
     Dosage: RAMP UP, DOSE INCREASE. RESOLUTION OF ADVERSE EVENT.
     Route: 048
     Dates: start: 20200427, end: 20200505
  6. VENETOCLAX [Suspect]
     Active Substance: VENETOCLAX
     Dosage: 400 MG, DISCONTINUATION, DEATH OF THE PATIENT
     Route: 048
     Dates: start: 20200606, end: 202008
  7. AZACITIDINE [Suspect]
     Active Substance: AZACITIDINE
     Indication: Acute myelomonocytic leukaemia
     Dosage: CYCLE 1
     Route: 058
     Dates: start: 20200413, end: 20200414
  8. AZACITIDINE [Suspect]
     Active Substance: AZACITIDINE
     Dosage: CYCLE 1
     Route: 058
     Dates: start: 20200416, end: 20200417
  9. AZACITIDINE [Suspect]
     Active Substance: AZACITIDINE
     Dosage: CYCLE 2
     Route: 058
     Dates: start: 20200417, end: 20200421
  10. AZACITIDINE [Suspect]
     Active Substance: AZACITIDINE
     Dosage: CYCLE 2
     Route: 058
     Dates: start: 20200614, end: 20200617
  11. HYDROXYUREA [Suspect]
     Active Substance: HYDROXYUREA
     Indication: Acute myeloid leukaemia
     Route: 048
     Dates: start: 20200413, end: 2020
  12. FUSID [Concomitant]
     Indication: Cardiac failure congestive
     Dates: start: 2018
  13. ALDACTONE [Concomitant]
     Active Substance: SPIRONOLACTONE
     Indication: Cardiac failure congestive
     Dates: start: 2018
  14. METFORMIN HYDROCHLORIDE [Concomitant]
     Active Substance: METFORMIN HYDROCHLORIDE
     Indication: Diabetes mellitus
     Dates: start: 2018
  15. LIPITOR [Concomitant]
     Active Substance: ATORVASTATIN CALCIUM
     Indication: Dyslipidaemia
     Dates: start: 2006
  16. NEXIUM [Concomitant]
     Active Substance: ESOMEPRAZOLE MAGNESIUM
     Indication: Gastrooesophageal reflux disease
     Dates: start: 2018
  17. INSULIN NOS [Concomitant]
     Active Substance: INSULIN NOS
     Indication: Diabetes mellitus
     Dates: start: 2018
  18. BISOPROLOL FUMARATE [Concomitant]
     Active Substance: BISOPROLOL FUMARATE
     Indication: Hypertension
     Dates: start: 2001
  19. RAMIPRIL [Concomitant]
     Active Substance: RAMIPRIL
     Indication: Myocardial ischaemia
     Dates: start: 2018
  20. LERCANIDIPINE HYDROCHLORIDE [Concomitant]
     Active Substance: LERCANIDIPINE HYDROCHLORIDE
     Indication: Hypertension
     Dates: start: 2001
  21. BEZAFIBRATE [Concomitant]
     Active Substance: BEZAFIBRATE
     Indication: Dyslipidaemia
     Dates: start: 2006
  22. ALLOPURINOL [Concomitant]
     Active Substance: ALLOPURINOL
     Indication: Prophylaxis
     Dates: start: 202003

REACTIONS (7)
  - Malignant neoplasm progression [Fatal]
  - Diverticulitis [Recovered/Resolved]
  - Splenic infarction [Recovered/Resolved]
  - Urinary tract infection [Recovered/Resolved]
  - Ventricular fibrillation [Recovered/Resolved with Sequelae]
  - Cerebrovascular accident [Not Recovered/Not Resolved]
  - Diarrhoea [Recovered/Resolved]

NARRATIVE: CASE EVENT DATE: 20200421
